FAERS Safety Report 24382024 (Version 1)
Quarter: 2024Q4

REPORT INFORMATION
  Report Type: Spontaneous
  Country: US (occurrence: US)
  Receive Date: 20241001
  Receipt Date: 20241001
  Transmission Date: 20250114
  Serious: No
  Sender: AMGEN
  Company Number: US-AMGEN-USASP2024193370

PATIENT
  Sex: Female

DRUGS (2)
  1. OTEZLA [Suspect]
     Active Substance: APREMILAST
     Indication: Psoriasis
     Dosage: 10MG(4)-20MG (4)-30MG 19 TAB IN DOSE, AS DIRECTED
     Route: 048
  2. ADIPEX-P [Concomitant]
     Active Substance: PHENTERMINE HYDROCHLORIDE
     Dosage: 37.5 MILLIGRAM

REACTIONS (2)
  - Therapy interrupted [Unknown]
  - Psoriasis [Not Recovered/Not Resolved]
